FAERS Safety Report 5759104-3 (Version None)
Quarter: 2008Q2

REPORT INFORMATION
  Report Type: 
  Country: None (occurrence: None)
  Receive Date: 20080604
  Receipt Date: 20080526
  Transmission Date: 20081010
  Serious: Yes (Hospitalization)
  Sender: FDA-Public Use
  Company Number: ZA-ABBOTT-08P-143-0453333-00

PATIENT
  Age: 46 Year
  Sex: Female

DRUGS (8)
  1. PIOGLITAZONE HYDROCHLORIDE (NOT ADMINISTERED) [Suspect]
     Indication: TYPE 2 DIABETES MELLITUS
  2. SYR-322 [Concomitant]
     Indication: TYPE 2 DIABETES MELLITUS
     Route: 048
     Dates: start: 20070206, end: 20070806
  3. SYR-322 [Concomitant]
     Route: 048
     Dates: start: 20070807
  4. EUGYNON [Concomitant]
     Indication: DRUG USE FOR UNKNOWN INDICATION
     Route: 048
     Dates: start: 20061228
  5. INDAPAMIDE [Concomitant]
     Indication: DRUG USE FOR UNKNOWN INDICATION
     Route: 048
     Dates: start: 20070530
  6. METFORMIN HCL [Concomitant]
     Indication: DRUG USE FOR UNKNOWN INDICATION
     Route: 048
     Dates: start: 20040101
  7. GLICLAZIDE [Concomitant]
     Indication: DRUG USE FOR UNKNOWN INDICATION
     Route: 048
     Dates: start: 20071123
  8. ENALAPRIL MALEATE [Concomitant]
     Indication: DRUG USE FOR UNKNOWN INDICATION
     Route: 048
     Dates: start: 20071002

REACTIONS (1)
  - CEREBROVASCULAR ACCIDENT [None]
